FAERS Safety Report 9061516 (Version 1)
Quarter: 2013Q1

REPORT INFORMATION
  Report Type: Spontaneous
  Country: ES (occurrence: ES)
  Receive Date: 20130204
  Receipt Date: 20130204
  Transmission Date: 20140127
  Serious: Yes (Other)
  Sender: FDA-Public Use
  Company Number: ES-VERTEX PHARMACEUTICALS INC.-2013-001459

PATIENT
  Sex: Female

DRUGS (3)
  1. INCIVO [Suspect]
     Indication: HEPATITIS C
     Dosage: 750 MG, TID
     Route: 048
     Dates: end: 20120124
  2. RIBAVIRIN [Concomitant]
     Indication: HEPATITIS C
  3. INTERFERON ALFA [Concomitant]
     Indication: HEPATITIS C

REACTIONS (1)
  - Rash [Unknown]
